FAERS Safety Report 11258841 (Version 1)
Quarter: 2015Q3

REPORT INFORMATION
  Report Type: Spontaneous
  Country: US (occurrence: US)
  Receive Date: 20150710
  Receipt Date: 20150710
  Transmission Date: 20151125
  Serious: No
  Sender: FDA-Public Use
  Company Number: US-PFIZER INC-2015227931

PATIENT
  Age: 29 Year
  Sex: Male
  Weight: 69.84 kg

DRUGS (3)
  1. DILANTIN [Suspect]
     Active Substance: PHENYTOIN
     Dosage: 400 MG, ONCE AT NIGHT
  2. DILANTIN [Suspect]
     Active Substance: PHENYTOIN
     Indication: SEIZURE
     Dosage: 100 MG, UNK
     Dates: start: 20150618
  3. DILANTIN [Suspect]
     Active Substance: PHENYTOIN
     Dosage: 300 MG, UNK

REACTIONS (7)
  - Vitamin D decreased [Recovered/Resolved]
  - Pruritus [Unknown]
  - Parosmia [Recovered/Resolved]
  - Paraesthesia [Recovered/Resolved]
  - Toxicity to various agents [Unknown]
  - Hearing impaired [Recovered/Resolved]
  - Anticonvulsant drug level decreased [Unknown]

NARRATIVE: CASE EVENT DATE: 201507
